FAERS Safety Report 18907780 (Version 5)
Quarter: 2022Q2

REPORT INFORMATION
  Report Type: Report from Study
  Country: BR (occurrence: BR)
  Receive Date: 20210218
  Receipt Date: 20220628
  Transmission Date: 20220721
  Serious: Yes (Other)
  Sender: FDA-Public Use
  Company Number: BR-AMGEN-BRASL2021024452

PATIENT
  Age: 61 Year
  Sex: Male

DRUGS (3)
  1. VECTIBIX [Suspect]
     Active Substance: PANITUMUMAB
     Indication: Gastrointestinal carcinoma
     Dosage: UNK, EVERY 15 DAYS
     Route: 042
     Dates: start: 201902
  2. VECTIBIX [Suspect]
     Active Substance: PANITUMUMAB
     Indication: Hepatic cancer
     Dosage: UNK, EVERY 15 DAYS
     Route: 042
     Dates: start: 20210401
  3. VECTIBIX [Suspect]
     Active Substance: PANITUMUMAB
     Indication: Colorectal cancer

REACTIONS (10)
  - Liver injury [Not Recovered/Not Resolved]
  - Immunosuppression [Unknown]
  - Skin reaction [Unknown]
  - Skin burning sensation [Unknown]
  - Drug ineffective [Not Recovered/Not Resolved]
  - Dry skin [Not Recovered/Not Resolved]
  - Weight decreased [Unknown]
  - Hypersensitivity [Not Recovered/Not Resolved]
  - Sleep apnoea syndrome [Unknown]
  - Neoplasm progression [Not Recovered/Not Resolved]

NARRATIVE: CASE EVENT DATE: 20210101
